FAERS Safety Report 19258087 (Version 1)
Quarter: 2021Q2

REPORT INFORMATION
  Report Type: Spontaneous
  Country: US (occurrence: US)
  Receive Date: 20210514
  Receipt Date: 20210514
  Transmission Date: 20210717
  Serious: No
  Sender: FDA-Public Use
  Company Number: None

PATIENT
  Sex: Male

DRUGS (2)
  1. TEMOZOLOMIDE 100MG AMNEAL PHARMACEUTICALS [Suspect]
     Active Substance: TEMOZOLOMIDE
     Indication: NASAL CAVITY CANCER
     Route: 048
     Dates: start: 20201230
  2. TEMOZOLOMIDE 5MG AMNEAL PHARMACEUTICALS [Suspect]
     Active Substance: TEMOZOLOMIDE
     Indication: NASAL CAVITY CANCER
     Route: 048
     Dates: start: 20201230

REACTIONS (1)
  - Full blood count decreased [None]
